FAERS Safety Report 18715952 (Version 2)
Quarter: 2021Q1

REPORT INFORMATION
  Report Type: Report from Study
  Country: US (occurrence: US)
  Receive Date: 20210108
  Receipt Date: 20210120
  Transmission Date: 20210419
  Serious: Yes (Other)
  Sender: FDA-Public Use
  Company Number: NVSC2020US347081

PATIENT
  Sex: Male

DRUGS (1)
  1. ENTRESTO [Suspect]
     Active Substance: SACUBITRIL\VALSARTAN
     Indication: CARDIAC FAILURE
     Dosage: 1 DF 97/103 MG), BID
     Route: 048
     Dates: start: 2018

REACTIONS (4)
  - Hypoacusis [Unknown]
  - Deafness [Unknown]
  - Lung disorder [Unknown]
  - Blood pressure abnormal [Unknown]
